FAERS Safety Report 16425927 (Version 2)
Quarter: 2019Q3

REPORT INFORMATION
  Report Type: Spontaneous
  Country: US (occurrence: US)
  Receive Date: 20190613
  Receipt Date: 20190708
  Transmission Date: 20191004
  Serious: Yes (Other)
  Sender: FDA-Public Use
  Company Number: US-PFIZER INC-2019252822

PATIENT
  Age: 64 Year
  Sex: Male

DRUGS (2)
  1. PONATINIB [Suspect]
     Active Substance: PONATINIB
     Indication: CHRONIC MYELOID LEUKAEMIA
     Dosage: 45 MG, 1X/DAY
     Route: 048
     Dates: start: 20190529
  2. BOSULIF [Suspect]
     Active Substance: BOSUTINIB MONOHYDRATE
     Dosage: UNK

REACTIONS (9)
  - Headache [Recovered/Resolved]
  - Back pain [Recovered/Resolved]
  - Rash [Recovered/Resolved]
  - Taste disorder [Recovered/Resolved]
  - Platelet count increased [Recovered/Resolved]
  - Visual impairment [Unknown]
  - Philadelphia chromosome positive [Recovered/Resolved]
  - Decreased appetite [Recovered/Resolved]
  - Vision blurred [Unknown]

NARRATIVE: CASE EVENT DATE: 20190531
